FAERS Safety Report 11618739 (Version 1)
Quarter: 2015Q4

REPORT INFORMATION
  Report Type: Spontaneous
  Country: SE (occurrence: SE)
  Receive Date: 20151012
  Receipt Date: 20151012
  Transmission Date: 20160304
  Serious: Yes (Life-Threatening, Other)
  Sender: FDA-Public Use
  Company Number: SE-HOSPIRA-3020748

PATIENT
  Age: 62 Year
  Sex: Male

DRUGS (11)
  1. ARCOXIA [Concomitant]
     Active Substance: ETORICOXIB
     Indication: PREMEDICATION
  2. GABAPENTIN. [Concomitant]
     Active Substance: GABAPENTIN
     Indication: PREMEDICATION
  3. ATROPINE. [Concomitant]
     Active Substance: ATROPINE
     Indication: ARRHYTHMIA
     Route: 042
  4. PREDNISOLON                        /00016201/ [Concomitant]
     Active Substance: PREDNISOLONE
     Indication: PREMEDICATION
  5. ALVEDON [Concomitant]
     Active Substance: ACETAMINOPHEN
     Indication: PREMEDICATION
  6. ATROPINE. [Concomitant]
     Active Substance: ATROPINE
     Indication: ARRHYTHMIA
     Route: 042
  7. BETAPRED [Concomitant]
     Active Substance: BETAMETHASONE SODIUM PHOSPHATE
     Indication: PREMEDICATION
  8. PHENYLEPHRINE [Concomitant]
     Active Substance: PHENYLEPHRINE\PHENYLEPHRINE HYDROCHLORIDE
     Indication: BLOOD PRESSURE MANAGEMENT
     Dosage: 5-10 ML
     Route: 041
  9. RINGER ACETATE [Concomitant]
     Indication: PREMEDICATION
     Route: 041
  10. MARCAINE [Concomitant]
     Active Substance: BUPIVACAINE HYDROCHLORIDE
     Indication: PREMEDICATION
     Dosage: 5 MG/ML
     Route: 024
  11. DEXDOR [Suspect]
     Active Substance: DEXMEDETOMIDINE HYDROCHLORIDE
     Indication: SEDATIVE THERAPY
     Dosage: 0.7 TO 1.0 MCG/KG/H, TOTAL: 19.3 ML
     Route: 041
     Dates: start: 20150914, end: 20150914

REACTIONS (2)
  - Product use issue [Unknown]
  - Sinus arrest [Recovered/Resolved]

NARRATIVE: CASE EVENT DATE: 20150914
